FAERS Safety Report 8004826-7 (Version None)
Quarter: 2011Q4

REPORT INFORMATION
  Report Type: 
  Country: None (occurrence: None)
  Receive Date: 20111223
  Receipt Date: 20111213
  Transmission Date: 20120403
  Serious: Yes (Other)
  Sender: FDA-Public Use
  Company Number: US-BRISTOL-MYERS SQUIBB COMPANY-16290017

PATIENT
  Age: 75 Year
  Sex: Female
  Weight: 68 kg

DRUGS (3)
  1. COUMADIN [Suspect]
     Dosage: 1DF:5MG AND 7.5MG IN EVERY OTHER DAY
  2. PLAVIX [Suspect]
  3. ACETAMINOPHEN [Suspect]

REACTIONS (6)
  - IMPAIRED HEALING [None]
  - CONTUSION [None]
  - RASH [None]
  - BONE PAIN [None]
  - ANGIOPLASTY [None]
  - MYALGIA [None]
